FAERS Safety Report 17543107 (Version 1)
Quarter: 2020Q1

REPORT INFORMATION
  Report Type: Report from Study
  Country: None (occurrence: IE)
  Receive Date: 20200316
  Receipt Date: 20200316
  Transmission Date: 20200409
  Serious: Yes (Hospitalization)
  Sender: FDA-Public Use
  Company Number: IE-ABBVIE-20K-229-3318689-00

PATIENT
  Sex: Female

DRUGS (1)
  1. HUMIRA [Suspect]
     Active Substance: ADALIMUMAB
     Indication: RHEUMATOID ARTHRITIS
     Route: 058
     Dates: start: 2014, end: 2019

REACTIONS (6)
  - Bladder disorder [Recovered/Resolved]
  - Sepsis [Unknown]
  - Influenza like illness [Recovered/Resolved]
  - Renal cyst [Recovered/Resolved]
  - Dehydration [Unknown]
  - Malaise [Unknown]
